FAERS Safety Report 6595744-X (Version None)
Quarter: 2010Q1

REPORT INFORMATION
  Report Type: 
  Country: None (occurrence: None)
  Receive Date: 20100223
  Receipt Date: 20100216
  Transmission Date: 20100710
  Serious: Yes (Other)
  Sender: FDA-Public Use
  Company Number: US-JNJFOC-20100104946

PATIENT
  Sex: Male

DRUGS (11)
  1. REMICADE [Suspect]
     Indication: CROHN'S DISEASE
     Route: 042
  2. REMICADE [Suspect]
     Route: 042
  3. REMICADE [Suspect]
     Route: 042
  4. LORAZEPAM [Concomitant]
  5. WELLBUTRIN [Concomitant]
  6. VALIUM [Concomitant]
  7. AMITRIPTYLINE HCL [Concomitant]
  8. PROTONIX [Concomitant]
  9. FOLIC ACID [Concomitant]
  10. PURINETHOL [Concomitant]
  11. ZYPREXA [Concomitant]

REACTIONS (12)
  - CHEST DISCOMFORT [None]
  - CROHN'S DISEASE [None]
  - DYSPNOEA [None]
  - EYE SWELLING [None]
  - INFUSION RELATED REACTION [None]
  - MALAISE [None]
  - NAUSEA [None]
  - PHARYNGEAL OEDEMA [None]
  - RASH [None]
  - RESPIRATORY TRACT CONGESTION [None]
  - URTICARIA [None]
  - WHEEZING [None]
